FAERS Safety Report 5045231-5 (Version None)
Quarter: 2006Q3

REPORT INFORMATION
  Report Type: 
  Country: None (occurrence: None)
  Receive Date: 20060707
  Receipt Date: 20060704
  Transmission Date: 20061208
  Serious: Yes (Other)
  Sender: FDA-Public Use
  Company Number: GXKR2006DE03760

PATIENT
  Age: 3 Year
  Sex: Female

DRUGS (2)
  1. CEFUHEXAL [Suspect]
     Dosage: 5ML TWICE PER DAY
     Route: 048
     Dates: start: 20060404, end: 20060405
  2. OTOBACID [Concomitant]
     Route: 001
     Dates: start: 20060404, end: 20060404

REACTIONS (6)
  - CRYING [None]
  - DISORIENTATION [None]
  - HALLUCINATION [None]
  - MUSCULOSKELETAL STIFFNESS [None]
  - NIGHTMARE [None]
  - RESTLESSNESS [None]
